FAERS Safety Report 8757985 (Version 2)
Quarter: 2012Q4

REPORT INFORMATION
  Report Type: 
  Country: CH (occurrence: CH)
  Receive Date: 20120828
  Receipt Date: 20121105
  Transmission Date: 20130627
  Serious: Yes (Hospitalization, Other)
  Sender: FDA-Public Use
  Company Number: CH-ELI_LILLY_AND_COMPANY-CH201208005480

PATIENT
  Age: 78 Year
  Sex: Male
  Weight: 74.5 kg

DRUGS (19)
  1. HUMALOG LISPRO [Suspect]
     Dosage: UNK, prn
     Route: 058
  2. ATACAND [Interacting]
     Indication: HYPERTENSIVE HEART DISEASE
     Dosage: 8 mg, qd
     Dates: start: 200707, end: 20120621
  3. ATACAND [Interacting]
     Dosage: 8 mg, qd
     Route: 048
     Dates: start: 200707, end: 20120621
  4. ALDACTONE [Interacting]
     Indication: HYPERTENSIVE HEART DISEASE
     Dosage: 25 mg, qd
     Dates: start: 200707, end: 20120621
  5. ALDACTONE [Interacting]
     Dosage: 25 mg, qd
     Route: 048
     Dates: start: 200707, end: 20120621
  6. NEBILET [Concomitant]
     Indication: HYPERTENSIVE HEART DISEASE
     Dosage: 2.5 mg, qd
     Dates: start: 201204, end: 20120621
  7. MEPHANOL [Concomitant]
     Dosage: 300 mg, qd
  8. MEPHANOL [Concomitant]
     Dosage: 300 mg, qd
     Route: 048
     Dates: end: 201206
  9. ASPIRIN CARDIO [Concomitant]
     Dosage: 100 mg, qd
  10. ASPIRIN CARDIO [Concomitant]
     Dosage: 100 mg, qd
     Route: 048
  11. TOREM [Concomitant]
     Dosage: 50 mg, qd
  12. TOREM [Concomitant]
     Dosage: 50 mg, qd
     Route: 048
  13. SORTIS [Concomitant]
     Dosage: 40 mg, qd
  14. SORTIS [Concomitant]
     Dosage: 40 mg, qd
     Route: 048
  15. LANTUS [Concomitant]
     Dosage: 20 IU, UNK
     Route: 058
  16. LANTUS [Concomitant]
     Dosage: 20 IU, qd
     Route: 058
  17. VI DE [Concomitant]
     Dosage: 4500 IU, qd
     Route: 048
  18. CALCIMAGON-D3 [Concomitant]
     Dosage: 1 DF, qd
  19. MARCOUMAR [Concomitant]
     Dosage: UNK
     Route: 048
     Dates: start: 201205

REACTIONS (2)
  - Renal failure chronic [Recovered/Resolved]
  - Dyspnoea [Recovered/Resolved]
